FAERS Safety Report 10046069 (Version 1)
Quarter: 2014Q1

REPORT INFORMATION
  Report Type: Spontaneous
  Country: US (occurrence: US)
  Receive Date: 20140331
  Receipt Date: 20140331
  Transmission Date: 20141002
  Serious: No
  Sender: FDA-Public Use
  Company Number: US-009507513-1403USA009369

PATIENT
  Age: 71 Year
  Sex: Male

DRUGS (3)
  1. SINEMET CR [Suspect]
     Dosage: DOSE: 25/100 MG(ALSO REPORTED AS 10/100 MG), Q4H
  2. LYRICA [Interacting]
     Indication: PARKINSON^S DISEASE
     Dosage: 75 MG, QD(FREQUENCY ALSO REPORTED AS Q 5H)
     Route: 048
     Dates: start: 20140127, end: 20140221
  3. LYRICA [Interacting]
     Dosage: 75 MG, QD(FREQUENCY ALSO REPORTED AS Q 5H)
     Route: 048
     Dates: start: 20140127, end: 20140221

REACTIONS (15)
  - Drug interaction [Unknown]
  - Local swelling [Unknown]
  - Skin burning sensation [Unknown]
  - Contusion [Unknown]
  - Dizziness [Unknown]
  - Ataxia [Unknown]
  - Rash [Unknown]
  - Rash macular [Unknown]
  - Clumsiness [Unknown]
  - Rash generalised [Unknown]
  - Rash papular [Unknown]
  - Gait disturbance [Unknown]
  - Gait disturbance [Unknown]
  - Wrong technique in drug usage process [Unknown]
  - Product packaging issue [Unknown]
